FAERS Safety Report 9520318 (Version 1)
Quarter: 2013Q3

REPORT INFORMATION
  Report Type: Spontaneous
  Country: SE (occurrence: SE)
  Receive Date: 20130912
  Receipt Date: 20130912
  Transmission Date: 20140515
  Serious: Yes (Other)
  Sender: FDA-Public Use
  Company Number: SE-ABBOTT-13P-150-1145832-00

PATIENT
  Sex: Male

DRUGS (3)
  1. HUMIRA [Suspect]
     Indication: PSORIASIS
     Dates: start: 20130422
  2. METOJECT [Concomitant]
     Indication: PRODUCT USED FOR UNKNOWN INDICATION
  3. METOTREXATE [Concomitant]
     Indication: PRODUCT USED FOR UNKNOWN INDICATION

REACTIONS (4)
  - Blindness [Unknown]
  - Visual impairment [Not Recovered/Not Resolved]
  - Macular degeneration [Not Recovered/Not Resolved]
  - Cataract [Not Recovered/Not Resolved]
